FAERS Safety Report 6696698-8 (Version None)
Quarter: 2010Q2

REPORT INFORMATION
  Report Type: 
  Country: None (occurrence: None)
  Receive Date: 20100426
  Receipt Date: 20100312
  Transmission Date: 20101027
  Serious: Yes (Other)
  Sender: FDA-Public Use
  Company Number: US-BAXTER-2010BH007895

PATIENT
  Age: 58 Year
  Sex: Female

DRUGS (21)
  1. HEPARIN SODIUM INJECTION [Suspect]
     Indication: PULMONARY EMBOLISM
     Route: 041
     Dates: start: 20070423, end: 20070424
  2. HEPARIN SODIUM INJECTION [Suspect]
     Indication: DEEP VEIN THROMBOSIS
     Route: 041
     Dates: start: 20070423, end: 20070424
  3. HEPARIN SODIUM INJECTION [Suspect]
     Indication: ATRIAL FIBRILLATION
     Route: 041
     Dates: start: 20070423, end: 20070424
  4. HEPARIN SODIUM INJECTION [Suspect]
     Route: 058
     Dates: start: 20070427
  5. HEPARIN SODIUM INJECTION [Suspect]
     Route: 058
     Dates: start: 20070427
  6. HEPARIN SODIUM INJECTION [Suspect]
     Route: 058
     Dates: start: 20070427
  7. HEPARIN SODIUM INJECTION [Suspect]
     Route: 041
     Dates: start: 20070429, end: 20070430
  8. HEPARIN SODIUM INJECTION [Suspect]
     Route: 041
     Dates: start: 20070429, end: 20070430
  9. HEPARIN SODIUM INJECTION [Suspect]
     Route: 041
     Dates: start: 20070429, end: 20070430
  10. HEPARIN SODIUM INJECTION [Suspect]
     Route: 065
     Dates: start: 20070401, end: 20070401
  11. HEPARIN SODIUM INJECTION [Suspect]
     Route: 065
     Dates: start: 20070401, end: 20070401
  12. HEPARIN SODIUM INJECTION [Suspect]
     Route: 065
     Dates: start: 20070401, end: 20070401
  13. HEPARIN SODIUM INJECTION [Suspect]
     Route: 065
     Dates: start: 20070401, end: 20070401
  14. HEPARIN SODIUM INJECTION [Suspect]
     Route: 065
     Dates: start: 20070401, end: 20070401
  15. HEPARIN SODIUM INJECTION [Suspect]
     Route: 065
     Dates: start: 20070401, end: 20070401
  16. ATENOLOL [Concomitant]
     Indication: DRUG USE FOR UNKNOWN INDICATION
     Route: 065
  17. PROVENTIL [Concomitant]
     Indication: DRUG USE FOR UNKNOWN INDICATION
     Route: 065
  18. PIOGLITAZONE [Concomitant]
     Indication: DRUG USE FOR UNKNOWN INDICATION
     Route: 065
  19. EPOGEN [Concomitant]
     Indication: DRUG USE FOR UNKNOWN INDICATION
     Route: 058
  20. SOLU-MEDROL [Concomitant]
     Indication: DRUG USE FOR UNKNOWN INDICATION
     Route: 042
  21. METOPROLOL [Concomitant]
     Indication: DRUG USE FOR UNKNOWN INDICATION
     Route: 048

REACTIONS (8)
  - ATRIAL FIBRILLATION [None]
  - DEEP VEIN THROMBOSIS [None]
  - DRUG HYPERSENSITIVITY [None]
  - GANGRENE [None]
  - HEPARIN-INDUCED THROMBOCYTOPENIA [None]
  - SEPSIS [None]
  - SUPRAVENTRICULAR TACHYCARDIA [None]
  - THROMBOSIS [None]
